FAERS Safety Report 24238768 (Version 1)
Quarter: 2024Q3

REPORT INFORMATION
  Report Type: Spontaneous
  Country: US (occurrence: None)
  Receive Date: 20240822
  Receipt Date: 20240822
  Transmission Date: 20241016
  Serious: Yes (Other)
  Sender: REDHILL BIOPHARMA
  Company Number: US-ARIS GLOBAL-RDH202408-000041

PATIENT
  Age: 73 Year
  Sex: Female

DRUGS (7)
  1. AEMCOLO [Suspect]
     Active Substance: RIFAMYCIN
     Indication: Mycobacterium avium complex infection
     Dosage: UNK
     Route: 048
  2. AEMCOLO [Suspect]
     Active Substance: RIFAMYCIN
     Indication: Off label use
  3. ETHAMBUTOL [Suspect]
     Active Substance: ETHAMBUTOL HYDROCHLORIDE
     Indication: Mycobacterium avium complex infection
     Route: 065
     Dates: start: 2006
  4. ETHAMBUTOL [Suspect]
     Active Substance: ETHAMBUTOL HYDROCHLORIDE
     Route: 065
     Dates: start: 20240415
  5. RIFAMPIN [Suspect]
     Active Substance: RIFAMPIN
     Indication: Mycobacterium avium complex infection
     Route: 065
     Dates: start: 2006
  6. RIFAMPIN [Suspect]
     Active Substance: RIFAMPIN
     Route: 065
  7. AZITHROMYCIN [Suspect]
     Active Substance: AZITHROMYCIN
     Indication: Mycobacterium avium complex infection
     Route: 065
     Dates: start: 20240415

REACTIONS (4)
  - Influenza like illness [Unknown]
  - Dehydration [Unknown]
  - Acute kidney injury [Recovered/Resolved]
  - Off label use [Unknown]
